FAERS Safety Report 22048594 (Version 1)
Quarter: 2023Q1

REPORT INFORMATION
  Report Type: Spontaneous
  Country: FR (occurrence: FR)
  Receive Date: 20230301
  Receipt Date: 20230301
  Transmission Date: 20230418
  Serious: Yes (Life-Threatening, Other)
  Sender: FDA-Public Use
  Company Number: None

PATIENT
  Age: 62 Year
  Sex: Male
  Weight: 90 kg

DRUGS (4)
  1. SOFOSBUVIR [Suspect]
     Active Substance: SOFOSBUVIR
     Indication: Hepatitis C virus test positive
     Dosage: UNK
     Route: 048
  2. INTERFERON [Suspect]
     Active Substance: INTERFERON
     Indication: Hepatitis C virus test positive
     Dosage: UNK
     Route: 048
  3. BENFLUOREX [Suspect]
     Active Substance: BENFLUOREX
     Indication: Product used for unknown indication
     Dosage: UNK
     Route: 048
     Dates: start: 2007, end: 2009
  4. DACLATASVIR [Suspect]
     Active Substance: DACLATASVIR
     Indication: Hepatitis C virus test positive
     Dosage: UNK
     Route: 048

REACTIONS (1)
  - Pulmonary arterial hypertension [Not Recovered/Not Resolved]

NARRATIVE: CASE EVENT DATE: 20150501
